FAERS Safety Report 4867564-5 (Version None)
Quarter: 2005Q4

REPORT INFORMATION
  Report Type: 
  Country: None (occurrence: None)
  Receive Date: 20051222
  Receipt Date: 20051212
  Transmission Date: 20060501
  Serious: Yes (Other)
  Sender: FDA-Public Use
  Company Number: 2005167983

PATIENT
  Age: 36 Year
  Sex: Male
  Weight: 88.4514 kg

DRUGS (19)
  1. ZYVOX [Suspect]
     Indication: PANCREATITIS
     Dosage: SEE IMAGE
     Route: 042
     Dates: start: 20051001, end: 20051030
  2. ZYVOX [Suspect]
     Indication: PANCREATITIS
     Dosage: SEE IMAGE
     Route: 042
     Dates: start: 20051031, end: 20051201
  3. ZYVOX [Suspect]
     Indication: PANCREATITIS
     Dosage: 1200 MG (600 MG, 2 IN 1 D), ORAL
     Route: 048
     Dates: start: 20051031, end: 20051201
  4. METOPROLOL [Concomitant]
  5. VASOTEC [Concomitant]
  6. METRONIDAZOLE [Concomitant]
  7. PROTONIX [Concomitant]
  8. REGLAN [Concomitant]
  9. HEPARIN [Concomitant]
  10. LOVENOX [Concomitant]
  11. SANDOSTATIN [Concomitant]
  12. PROMETHAZINE [Concomitant]
  13. MORPHINE [Concomitant]
  14. DILAUDID [Concomitant]
  15. GARAMYCIN [Concomitant]
  16. MAXIPIME [Concomitant]
  17. VANCOMYCIN [Concomitant]
  18. PRIMAXIN [Concomitant]
  19. NITROFURANTOIN [Concomitant]

REACTIONS (3)
  - DIFFICULTY IN WALKING [None]
  - HYPOAESTHESIA [None]
  - PARAESTHESIA [None]
